FAERS Safety Report 24312160 (Version 1)
Quarter: 2024Q3

REPORT INFORMATION
  Report Type: Spontaneous
  Country: FR (occurrence: FR)
  Receive Date: 20240912
  Receipt Date: 20240912
  Transmission Date: 20241016
  Serious: Yes (Life-Threatening)
  Sender: CSL BEHRING
  Company Number: None

PATIENT
  Age: 67 Year
  Sex: Female
  Weight: 50 kg

DRUGS (16)
  1. PRIVIGEN [Suspect]
     Active Substance: HUMAN IMMUNOGLOBULIN G
     Indication: Systemic scleroderma
     Route: 042
     Dates: start: 20240521, end: 20240521
  2. CREON [Concomitant]
     Active Substance: PANCRELIPASE AMYLASE\PANCRELIPASE LIPASE\PANCRELIPASE PROTEASE
  3. DAPAGLIFLOZIN [Concomitant]
     Active Substance: DAPAGLIFLOZIN
  4. CELLCEPT [Concomitant]
     Active Substance: MYCOPHENOLATE MOFETIL
     Dosage: UNK
  5. OCTREOTIDE ACETATE [Concomitant]
     Active Substance: OCTREOTIDE ACETATE
  6. METOCLOPRAMIDE [Concomitant]
     Active Substance: METOCLOPRAMIDE
  7. PREDNISONE [Concomitant]
     Active Substance: PREDNISONE
  8. LANSOPRAZOLE [Concomitant]
     Active Substance: LANSOPRAZOLE
  9. AMLODIPINE [Concomitant]
     Active Substance: AMLODIPINE BESYLATE
  10. ZYMADERM [Concomitant]
  11. XARELTO [Concomitant]
     Active Substance: RIVAROXABAN
  12. ACETATE D NICHIIKO [Concomitant]
  13. RAMIPRIL [Concomitant]
     Active Substance: RAMIPRIL
  14. METOCLOPRAMIDE HYDROCHLORIDE [Concomitant]
     Active Substance: METOCLOPRAMIDE HYDROCHLORIDE
  15. Aldactone saltucin [Concomitant]
  16. ESCITALOPRAM OXALATE [Concomitant]
     Active Substance: ESCITALOPRAM OXALATE

REACTIONS (4)
  - Acute pulmonary oedema [Recovered/Resolved]
  - Bronchospasm [Recovered/Resolved]
  - Product availability issue [Not Recovered/Not Resolved]
  - Off label use [Unknown]

NARRATIVE: CASE EVENT DATE: 20240521
